FAERS Safety Report 9737588 (Version 1)
Quarter: 2013Q4

REPORT INFORMATION
  Report Type: Spontaneous
  Country: CN (occurrence: CN)
  Receive Date: 20131207
  Receipt Date: 20131207
  Transmission Date: 20140711
  Serious: Yes (Death, Other)
  Sender: FDA-Public Use
  Company Number: CN-PERRIGO-13CN012401

PATIENT
  Age: 35 Year
  Sex: Male

DRUGS (1)
  1. BROMOCRIPTINE MESYLATE USP RX 2.5 MG 2P6 [Suspect]
     Indication: PROLACTINOMA
     Dosage: UNK, UNK
     Route: 065

REACTIONS (2)
  - Substance-induced psychotic disorder [Not Recovered/Not Resolved]
  - Completed suicide [Fatal]
